FAERS Safety Report 9271781 (Version 1)
Quarter: 2013Q2

REPORT INFORMATION
  Report Type: Spontaneous
  Country: GB (occurrence: GB)
  Receive Date: 20130506
  Receipt Date: 20130506
  Transmission Date: 20140414
  Serious: Yes (Life-Threatening)
  Sender: FDA-Public Use
  Company Number: GB-JNJFOC-20130417062

PATIENT
  Age: 18 Year
  Sex: Female

DRUGS (9)
  1. NORETHISTERONE [Suspect]
     Indication: CONTRACEPTION
     Route: 065
  2. DOXORUBICIN HYDROCHLORIDE [Suspect]
     Indication: HODGKIN^S DISEASE
     Dosage: CYCLE=2
     Route: 042
  3. VINCRISTINE [Suspect]
     Indication: HODGKIN^S DISEASE
     Dosage: CYCLE=2
     Route: 065
  4. CYCLOPHOSPHAMIDE [Suspect]
     Indication: HODGKIN^S DISEASE
     Dosage: CYCLE=2
     Route: 065
  5. ETOPOSIDE [Suspect]
     Indication: HODGKIN^S DISEASE
     Dosage: CYCLE=2
     Route: 065
  6. RADIOTHERAPY [Suspect]
     Indication: HODGKIN^S DISEASE
     Dosage: 19.8 - 30 GY
     Route: 065
  7. DACARBAZINE [Suspect]
     Indication: HODGKIN^S DISEASE
     Dosage: CYCLE=2
     Route: 065
  8. PREDNISOLONE [Suspect]
     Indication: HODGKIN^S DISEASE
     Dosage: CYCLE=2
     Route: 065
  9. STEROIDS NOS [Suspect]
     Indication: PRODUCT USED FOR UNKNOWN INDICATION
     Dosage: CYCLE=2
     Route: 065

REACTIONS (1)
  - Cerebral venous thrombosis [Recovered/Resolved]
